FAERS Safety Report 12602918 (Version 1)
Quarter: 2016Q3

REPORT INFORMATION
  Report Type: Spontaneous
  Country: JP (occurrence: JP)
  Receive Date: 20160728
  Receipt Date: 20160728
  Transmission Date: 20161109
  Serious: Yes (Other)
  Sender: FDA-Public Use
  Company Number: JP-PFIZER INC-2016356638

PATIENT

DRUGS (2)
  1. MEDROL [Suspect]
     Active Substance: METHYLPREDNISOLONE
     Route: 048
  2. PREDNIN [Suspect]
     Active Substance: PREDNISOLONE SODIUM PHOSPHATE

REACTIONS (1)
  - Haemorrhagic diathesis [Unknown]
